FAERS Safety Report 11714595 (Version 1)
Quarter: 2015Q4

REPORT INFORMATION
  Report Type: Spontaneous
  Country: US (occurrence: None)
  Receive Date: 20151106
  Receipt Date: 20151106
  Transmission Date: 20160304
  Serious: No
  Sender: FDA-Public Use
  Company Number: None

PATIENT
  Age: 58 Year
  Sex: Male
  Weight: 110 kg

DRUGS (1)
  1. GADOBENATE [Suspect]
     Active Substance: GADOBENATE DIMEGLUMINE
     Indication: SURGERY
     Route: 042
     Dates: start: 20150410, end: 20150410

REACTIONS (1)
  - Angioedema [None]

NARRATIVE: CASE EVENT DATE: 20150410
